FAERS Safety Report 13860186 (Version 1)
Quarter: 2017Q3

REPORT INFORMATION
  Report Type: Report from Study
  Country: None (occurrence: US)
  Receive Date: 20170811
  Receipt Date: 20170811
  Transmission Date: 20171127
  Serious: Yes (Hospitalization)
  Sender: FDA-Public Use
  Company Number: US-ABBVIE-17K-163-1919372-00

PATIENT
  Age: 55 Year
  Sex: Male
  Weight: 108.96 kg

DRUGS (2)
  1. HUMIRA [Suspect]
     Active Substance: ADALIMUMAB
     Indication: PSORIASIS
     Route: 058
     Dates: start: 20170131, end: 201703
  2. HUMIRA [Suspect]
     Active Substance: ADALIMUMAB
     Route: 058
     Dates: start: 201704

REACTIONS (7)
  - Muscle rupture [Recovered/Resolved]
  - Intervertebral disc protrusion [Recovering/Resolving]
  - Hypoaesthesia [Recovering/Resolving]
  - Upper respiratory tract infection [Recovering/Resolving]
  - Cough [Recovered/Resolved]
  - Influenza [Not Recovered/Not Resolved]
  - Pain in extremity [Recovering/Resolving]

NARRATIVE: CASE EVENT DATE: 2017
